FAERS Safety Report 11940614 (Version 1)
Quarter: 2016Q1

REPORT INFORMATION
  Report Type: Spontaneous
  Country: JP (occurrence: JP)
  Receive Date: 20160122
  Receipt Date: 20160122
  Transmission Date: 20160526
  Serious: Yes (Life-Threatening, Hospitalization)
  Sender: FDA-Public Use
  Company Number: JP-TEVA-2016-JP-000094J

PATIENT
  Age: 56 Year
  Sex: Female
  Weight: 45 kg

DRUGS (3)
  1. PAIPELAC TABLET 200MG [Suspect]
     Active Substance: ETODOLAC
     Indication: PRODUCT USED FOR UNKNOWN INDICATION
     Dosage: 400 MILLIGRAM DAILY;
     Route: 048
     Dates: start: 20151014
  2. RHEUMATREX [Suspect]
     Active Substance: METHOTREXATE SODIUM
     Indication: RHEUMATOID ARTHRITIS
     Route: 048
     Dates: start: 20151014, end: 20151104
  3. REBAMIPIDE [Suspect]
     Active Substance: REBAMIPIDE
     Indication: PRODUCT USED FOR UNKNOWN INDICATION
     Dosage: 200 MILLIGRAM DAILY;
     Route: 048
     Dates: start: 20151014

REACTIONS (4)
  - Bone marrow disorder [Recovered/Resolved]
  - Bone marrow failure [None]
  - Chapped lips [Unknown]
  - Stomatitis [None]

NARRATIVE: CASE EVENT DATE: 201511
